FAERS Safety Report 4624982-8 (Version None)
Quarter: 2005Q2

REPORT INFORMATION
  Report Type: 
  Country: None (occurrence: None)
  Receive Date: 20050325
  Receipt Date: 20050127
  Transmission Date: 20051028
  Serious: No
  Sender: FDA-Public Use
  Company Number: USA050189381

PATIENT
  Age: 79 Year
  Sex: Female
  Weight: 48 kg

DRUGS (5)
  1. FORTEO [Suspect]
     Indication: OSTEOPOROSIS
     Dosage: 20 UG DAY
     Dates: start: 20050124
  2. EVISTA [Suspect]
     Dosage: 60 MG DAY
     Dates: start: 20030101
  3. PLAVIX [Concomitant]
  4. ZOCOR (SIMVASTATIN RATIOPHARM) [Concomitant]
  5. CALTRATE 600 PLUS VITAMIN D [Concomitant]

REACTIONS (3)
  - MUSCLE SPASMS [None]
  - TOOTH INJURY [None]
  - TOOTH REPAIR [None]
